FAERS Safety Report 6303975-9 (Version None)
Quarter: 2009Q3

REPORT INFORMATION
  Report Type: 
  Country: None (occurrence: None)
  Receive Date: 20090810
  Receipt Date: 20090729
  Transmission Date: 20100115
  Serious: Yes (Death, Life-Threatening, Hospitalization, Other)
  Sender: FDA-Public Use
  Company Number: US-PFIZER INC-2009247724

PATIENT
  Age: 62 Year
  Sex: Male
  Weight: 76.644 kg

DRUGS (2)
  1. SUTENT [Suspect]
     Indication: OESOPHAGEAL CARCINOMA
     Dosage: 37.5 MG, 1X/DAY
     Route: 048
     Dates: start: 20090714, end: 20090727
  2. TAXOL [Suspect]
     Indication: OESOPHAGEAL CARCINOMA
     Dosage: 171 MG, DAYS 1,8,15
     Route: 042
     Dates: start: 20090714, end: 20090727

REACTIONS (2)
  - DEATH [None]
  - PULMONARY EMBOLISM [None]
